FAERS Safety Report 20862473 (Version 2)
Quarter: 2022Q3

REPORT INFORMATION
  Report Type: Spontaneous
  Country: US (occurrence: US)
  Receive Date: 20220523
  Receipt Date: 20220829
  Transmission Date: 20221027
  Serious: No
  Sender: FDA-Public Use
  Company Number: US-BRISTOL-MYERS SQUIBB COMPANY-2022-031122

PATIENT
  Age: 63 Year
  Sex: Male
  Weight: 127.91 kg

DRUGS (2)
  1. REVLIMID [Suspect]
     Active Substance: LENALIDOMIDE
     Indication: Plasma cell myeloma
     Dosage: DAILY FOR 14 DAYS, EVERY 21 DAYS
     Route: 048
     Dates: start: 20211102
  2. REVLIMID [Suspect]
     Active Substance: LENALIDOMIDE
     Dosage: DAILY X 14 DAYS, EVERY 21 DAYS
     Route: 048
     Dates: start: 20211105

REACTIONS (7)
  - Dehydration [Not Recovered/Not Resolved]
  - Muscle spasms [Recovering/Resolving]
  - Hiccups [Recovering/Resolving]
  - Back pain [Unknown]
  - Decreased activity [Unknown]
  - Gait disturbance [Unknown]
  - Off label use [Unknown]

NARRATIVE: CASE EVENT DATE: 20220518
